FAERS Safety Report 12222634 (Version 1)
Quarter: 2016Q1

REPORT INFORMATION
  Report Type: Spontaneous
  Country: NL (occurrence: NL)
  Receive Date: 20160330
  Receipt Date: 20160330
  Transmission Date: 20160526
  Serious: Yes (Hospitalization)
  Sender: FDA-Public Use
  Company Number: NL-SYNTHON BV-NL01PV16_40780

PATIENT
  Age: 38 Year
  Sex: Male

DRUGS (2)
  1. ZOLPIDEM [Suspect]
     Active Substance: ZOLPIDEM\ZOLPIDEM TARTRATE
     Dosage: 10 TABLETS OF 10 MG (100 MG TOTAL)
     Route: 048
  2. NORTRIPTYLINE [Suspect]
     Active Substance: NORTRIPTYLINE
     Dosage: 55 TABLETS OF 25 MG (1,375 MG TOTAL)
     Route: 048

REACTIONS (11)
  - Obstructive airways disorder [Recovering/Resolving]
  - Tachycardia [Recovering/Resolving]
  - Amnesia [Unknown]
  - Ventricular arrhythmia [Recovering/Resolving]
  - Hyperthermia [Recovering/Resolving]
  - Overdose [Recovering/Resolving]
  - Suicide attempt [Recovering/Resolving]
  - Hypotension [Recovering/Resolving]
  - Seizure [Recovering/Resolving]
  - Hepatotoxicity [Recovered/Resolved]
  - Somnolence [Recovering/Resolving]
